FAERS Safety Report 14902500 (Version 1)
Quarter: 2018Q2

REPORT INFORMATION
  Report Type: Spontaneous
  Country: US (occurrence: US)
  Receive Date: 20180516
  Receipt Date: 20180516
  Transmission Date: 20180711
  Serious: No
  Sender: FDA-Public Use
  Company Number: US-SA-2017SA078026

PATIENT
  Age: 61 Year
  Sex: Female

DRUGS (2)
  1. SOLOSTAR [Concomitant]
     Active Substance: DEVICE
     Indication: TYPE 1 DIABETES MELLITUS
     Dates: start: 1997
  2. LANTUS SOLOSTAR [Suspect]
     Active Substance: INSULIN GLARGINE
     Indication: TYPE 1 DIABETES MELLITUS
     Dosage: HER DOSE IS 38 UNITS AT BEDTIME. HOWEVER, SHE DOES NOT TAKE THE LANTUS AS SHE IS SUPPOSED TO
     Route: 065
     Dates: start: 1997

REACTIONS (2)
  - Intentional product misuse [Unknown]
  - Product use issue [Unknown]
